FAERS Safety Report 9222843 (Version 2)
Quarter: 2013Q2

REPORT INFORMATION
  Report Type: Spontaneous
  Country: US (occurrence: US)
  Receive Date: 20130410
  Receipt Date: 20130503
  Transmission Date: 20140414
  Serious: Yes (Other)
  Sender: FDA-Public Use
  Company Number: US-PFIZER INC-2013109921

PATIENT
  Age: 20 Year
  Sex: Female
  Weight: 56.69 kg

DRUGS (9)
  1. ZOLOFT [Suspect]
     Indication: ANXIETY
     Dosage: UNK
     Dates: start: 2008
  2. ZOLOFT [Interacting]
     Dosage: 50 MG, 2X/DAY
     Dates: start: 2009
  3. ZOLOFT [Interacting]
     Dosage: UNK
     Dates: start: 2010
  4. ZOLOFT [Interacting]
     Dosage: UNK
     Dates: start: 2011
  5. ZOLOFT [Interacting]
     Dosage: 50 MG, 2X/DAY
     Route: 048
     Dates: start: 20130312, end: 201303
  6. ZOLOFT [Interacting]
     Dosage: 25 MG, 2X/DAY
     Route: 048
     Dates: start: 20130401, end: 20130404
  7. ADDERALL XR [Interacting]
     Indication: ATTENTION DEFICIT/HYPERACTIVITY DISORDER
     Dosage: 15 MG, Q AM
     Route: 048
     Dates: start: 20111020
  8. SPRINTEC [Concomitant]
     Indication: OVARIAN CYST
     Dosage: UNK
  9. SPRINTEC [Concomitant]
     Indication: CONTRACEPTION

REACTIONS (8)
  - Drug interaction [Recovered/Resolved]
  - Convulsion [Recovered/Resolved]
  - Loss of consciousness [Unknown]
  - Confusional state [Unknown]
  - Feeling abnormal [Unknown]
  - Hearing impaired [Unknown]
  - Disturbance in attention [Unknown]
  - Eating disorder [Unknown]
